FAERS Safety Report 24573236 (Version 1)
Quarter: 2024Q4

REPORT INFORMATION
  Report Type: Spontaneous
  Country: CN (occurrence: CN)
  Receive Date: 20241101
  Receipt Date: 20241101
  Transmission Date: 20250114
  Serious: Yes (Hospitalization)
  Sender: GE HEALTHCARE
  Company Number: CN-GE HEALTHCARE-2024CSU012370

PATIENT
  Age: 50 Year
  Sex: Female

DRUGS (2)
  1. OMNIPAQUE [Suspect]
     Active Substance: IOHEXOL
     Indication: Computerised tomogram head
     Dosage: 35 GM, TOTAL
     Route: 041
     Dates: start: 20240709, end: 20240709
  2. OMNIPAQUE [Suspect]
     Active Substance: IOHEXOL
     Indication: Arteriogram carotid

REACTIONS (4)
  - Urinary incontinence [Recovered/Resolved]
  - Anal incontinence [Recovered/Resolved]
  - Dizziness [Recovered/Resolved]
  - Nausea [Unknown]

NARRATIVE: CASE EVENT DATE: 20240709
